FAERS Safety Report 12828559 (Version 1)
Quarter: 2016Q4

REPORT INFORMATION
  Report Type: Spontaneous
  Country: US (occurrence: US)
  Receive Date: 20161007
  Receipt Date: 20161007
  Transmission Date: 20170207
  Serious: No
  Sender: FDA-Public Use
  Company Number: US-SA-2015SA153664

PATIENT
  Age: 38 Year
  Sex: Male

DRUGS (1)
  1. AUBAGIO [Suspect]
     Active Substance: TERIFLUNOMIDE
     Indication: MULTIPLE SCLEROSIS
     Route: 048

REACTIONS (8)
  - Malaise [Recovering/Resolving]
  - Dyspnoea [Recovering/Resolving]
  - Drug dose omission [Unknown]
  - Bronchitis [Recovering/Resolving]
  - Depression [Unknown]
  - Nasopharyngitis [Recovering/Resolving]
  - Feeling abnormal [Unknown]
  - Respiratory tract congestion [Recovering/Resolving]
